FAERS Safety Report 14245098 (Version 2)
Quarter: 2018Q2

REPORT INFORMATION
  Report Type: Spontaneous
  Country: US (occurrence: US)
  Receive Date: 20171202
  Receipt Date: 20180604
  Transmission Date: 20180711
  Serious: Yes (Hospitalization)
  Sender: FDA-Public Use
  Company Number: US-SUN PHARMACEUTICAL INDUSTRIES LTD-2017US-155720

PATIENT
  Age: 76 Year
  Sex: Male

DRUGS (1)
  1. LITHIUM. [Suspect]
     Active Substance: LITHIUM
     Indication: BIPOLAR I DISORDER
     Dosage: 300 MG, BID
     Route: 065

REACTIONS (2)
  - Delirium [Recovered/Resolved]
  - Neurotoxicity [Recovered/Resolved]
